FAERS Safety Report 15281611 (Version 1)
Quarter: 2018Q4

REPORT INFORMATION
  Report Type: Spontaneous
  Country: FR (occurrence: FR)
  Receive Date: 20180815
  Receipt Date: 20180815
  Transmission Date: 20190204
  Serious: Yes (Death, Hospitalization)
  Sender: FDA-Public Use
  Company Number: FR-TEVA-2018-FR-941605

PATIENT
  Age: 74 Year
  Sex: Female

DRUGS (11)
  1. XANAX [Suspect]
     Active Substance: ALPRAZOLAM
     Indication: ANXIETY
     Dates: end: 20130811
  2. ABILIFY [Suspect]
     Active Substance: ARIPIPRAZOLE
     Indication: DEMENTIA
     Dosage: 1 DF, UNK
     Route: 048
     Dates: start: 201307
  3. NOVORAPID [Concomitant]
     Active Substance: INSULIN ASPART
     Indication: TYPE 2 DIABETES MELLITUS
     Dosage: UNK
     Route: 065
     Dates: end: 20130811
  4. ZOPICLONE [Suspect]
     Active Substance: ZOPICLONE
     Indication: SLEEP DISORDER
     Dosage: 1 DOSAGE FORMS DAILY;
     Route: 065
     Dates: end: 20130811
  5. PRETERAX [Suspect]
     Active Substance: INDAPAMIDE\PERINDOPRIL
     Indication: HYPERTENSION
     Dosage: 1 DF, UNK
     Route: 048
     Dates: end: 20130811
  6. LANTUS [Concomitant]
     Active Substance: INSULIN GLARGINE
     Indication: TYPE 2 DIABETES MELLITUS
     Dosage: UNK
     Route: 058
     Dates: start: 20130811
  7. CITALOPRAM [Suspect]
     Active Substance: CITALOPRAM HYDROBROMIDE
     Indication: DEPRESSION
     Dosage: 20 MG, UNK
     Route: 048
     Dates: end: 20130811
  8. LAMALINE (CAFFEINE\PARACETAMOL\ATROPA BELLADONNA EXTRACT\PAPAVER SOMNIFERUM TINCTURE) [Suspect]
     Active Substance: ACETAMINOPHEN\BELLADONNA LEAF\CAFFEINE\OPIUM
     Indication: PAIN
     Dosage: UNK
     Route: 048
     Dates: end: 20130811
  9. LOXAPAC [Suspect]
     Active Substance: LOXAPINE
     Indication: DEMENTIA
     Dosage: 25 MG, UNK
     Route: 048
     Dates: start: 20130729, end: 20130811
  10. XANAX [Suspect]
     Active Substance: ALPRAZOLAM
     Indication: ANXIETY
     Dosage: UNK UNK, QD
     Route: 048
     Dates: end: 20130811
  11. FLUCONAZOLE. [Suspect]
     Active Substance: FLUCONAZOLE
     Indication: HYPERTENSION
     Dosage: 1 DOSAGE FORMS DAILY; 1DF: 10/2.5 UNITS NOS
     Route: 048
     Dates: end: 20130811

REACTIONS (6)
  - Pneumonia aspiration [Fatal]
  - Death [Fatal]
  - Diabetic hyperosmolar coma [Fatal]
  - Acute kidney injury [Fatal]
  - Inflammation [Fatal]
  - Somnolence [Fatal]

NARRATIVE: CASE EVENT DATE: 20130811
